FAERS Safety Report 8959627 (Version 1)
Quarter: 2012Q4

REPORT INFORMATION
  Report Type: 
  Country: NL (occurrence: NL)
  Receive Date: 20121212
  Receipt Date: 20121212
  Transmission Date: 20130627
  Serious: Yes (Death)
  Sender: FDA-Public Use
  Company Number: PHHY2012NL113589

PATIENT
  Sex: Male

DRUGS (4)
  1. ZOMETA [Suspect]
     Indication: PROSTATE CANCER METASTATIC
     Dosage: 4 mg/100 ml, 1x per 28 days
     Route: 042
  2. ZOMETA [Suspect]
     Dosage: 4 mg/100 ml, 1x per 28 days
     Route: 042
     Dates: start: 20110817
  3. ZOMETA [Suspect]
     Dosage: 4 mg/100 ml, 1x per 28 days
     Route: 042
     Dates: start: 20121010
  4. ZOMETA [Suspect]
     Dosage: 4 mg/100 ml, 1x per 28 days
     Route: 042
     Dates: start: 20121106

REACTIONS (2)
  - General physical health deterioration [Fatal]
  - Malignant neoplasm progression [Fatal]
